FAERS Safety Report 10147439 (Version 2)
Quarter: 2014Q2

REPORT INFORMATION
  Report Type: Spontaneous
  Country: BR (occurrence: BR)
  Receive Date: 20140501
  Receipt Date: 20140630
  Transmission Date: 20141212
  Serious: Yes (Hospitalization)
  Sender: FDA-Public Use
  Company Number: BR-009507513-1404BRA015039

PATIENT
  Sex: Female
  Weight: 79 kg

DRUGS (1)
  1. MERCILON  CONTI [Suspect]
     Indication: CONTRACEPTION
     Dosage: 1 DF, QD
     Route: 048
     Dates: start: 2011, end: 20140422

REACTIONS (5)
  - Pyelonephritis [Recovered/Resolved]
  - Candida infection [Recovered/Resolved]
  - Therapeutic response changed [Unknown]
  - Menstrual disorder [Recovered/Resolved]
  - Weight decreased [Recovered/Resolved]
